FAERS Safety Report 6339134-3 (Version None)
Quarter: 2009Q3

REPORT INFORMATION
  Report Type: 
  Country: None (occurrence: None)
  Receive Date: 20090831
  Receipt Date: 20090602
  Transmission Date: 20100115
  Serious: No
  Sender: FDA-Public Use
  Company Number: MC200900208

PATIENT

DRUGS (5)
  1. CLEVIPREX [Suspect]
     Indication: BLOOD PRESSURE MANAGEMENT
     Dosage: SEE IMAGE
     Route: 042
     Dates: start: 20090602, end: 20090602
  2. CLEVIPREX [Suspect]
     Indication: BLOOD PRESSURE MANAGEMENT
     Dosage: SEE IMAGE
     Route: 042
     Dates: start: 20090602, end: 20090602
  3. CLEVIPREX [Suspect]
     Indication: BLOOD PRESSURE MANAGEMENT
     Dosage: SEE IMAGE
     Route: 042
     Dates: start: 20090602, end: 20090602
  4. CLEVIPREX [Suspect]
     Indication: BLOOD PRESSURE MANAGEMENT
     Dosage: SEE IMAGE
     Route: 042
     Dates: start: 20090602, end: 20090602
  5. NICARDIPINE HCL [Suspect]
     Indication: BLOOD PRESSURE INADEQUATELY CONTROLLED
     Dosage: 15 MG, INTRAVENOUS
     Route: 042
     Dates: start: 20090602, end: 20090602

REACTIONS (2)
  - BLOOD PRESSURE INADEQUATELY CONTROLLED [None]
  - TACHYCARDIA [None]
